FAERS Safety Report 24778007 (Version 1)
Quarter: 2024Q4

REPORT INFORMATION
  Report Type: Spontaneous
  Country: US (occurrence: US)
  Receive Date: 20241226
  Receipt Date: 20241226
  Transmission Date: 20250115
  Serious: Yes (Other)
  Sender: AMGEN
  Company Number: US-AMGEN-USASP2024252409

PATIENT
  Age: 32 Year
  Sex: Male

DRUGS (3)
  1. BEVACIZUMAB [Suspect]
     Active Substance: BEVACIZUMAB
     Indication: Astrocytoma malignant
     Dosage: UNK
     Route: 065
  2. OXYGEN [Concomitant]
     Active Substance: OXYGEN
     Indication: Astrocytoma malignant
     Dosage: UNK
     Route: 065
  3. TEMOZOLOMIDE [Concomitant]
     Active Substance: TEMOZOLOMIDE
     Dosage: UNK
     Route: 065

REACTIONS (6)
  - Vasogenic cerebral oedema [Unknown]
  - Hemiparesis [Unknown]
  - Drug effective for unapproved indication [Unknown]
  - Cognitive disorder [Unknown]
  - Off label use [Unknown]
  - Dysarthria [Unknown]
